FAERS Safety Report 5618361-4 (Version None)
Quarter: 2008Q1

REPORT INFORMATION
  Report Type: 
  Country: None (occurrence: None)
  Receive Date: 20080207
  Receipt Date: 20080107
  Transmission Date: 20080703
  Serious: No
  Sender: FDA-Public Use
  Company Number: US-BAYER-200713200BWH

PATIENT
  Age: 28 Year
  Sex: Male
  Weight: 113 kg

DRUGS (2)
  1. CIPRO XR [Suspect]
     Indication: CYSTITIS
     Route: 048
     Dates: start: 20050101
  2. CIPRO XR [Suspect]
     Route: 048
     Dates: start: 20050101

REACTIONS (17)
  - ARTHRALGIA [None]
  - ARTHROPATHY [None]
  - ASTHENIA [None]
  - BACK DISORDER [None]
  - DIARRHOEA [None]
  - HEART RATE IRREGULAR [None]
  - HYPOAESTHESIA [None]
  - INSOMNIA [None]
  - JOINT CREPITATION [None]
  - JOINT STIFFNESS [None]
  - MUSCLE TWITCHING [None]
  - MUSCULAR WEAKNESS [None]
  - MYALGIA [None]
  - NEUROPATHY PERIPHERAL [None]
  - PANIC ATTACK [None]
  - PARAESTHESIA [None]
  - TINNITUS [None]
